FAERS Safety Report 10578600 (Version 1)
Quarter: 2014Q4

REPORT INFORMATION
  Report Type: Spontaneous
  Country: US (occurrence: None)
  Receive Date: 20141111
  Receipt Date: 20141111
  Transmission Date: 20150529
  Serious: Yes (Other)
  Sender: FDA-Public Use
  Company Number: None

PATIENT
  Age: 64 Year
  Sex: Female
  Weight: 59.88 kg

DRUGS (1)
  1. LEVOFLOXACIN 750MG [Suspect]
     Active Substance: LEVOFLOXACIN
     Dosage: ONE TABLET
     Route: 048
     Dates: start: 20140916, end: 20140926

REACTIONS (5)
  - Vomiting [None]
  - Nausea [None]
  - Gastric infection [None]
  - Confusional state [None]
  - Diarrhoea [None]

NARRATIVE: CASE EVENT DATE: 20140916
